FAERS Safety Report 6202873-9 (Version None)
Quarter: 2009Q2

REPORT INFORMATION
  Report Type: 
  Country: None (occurrence: None)
  Receive Date: 20090520
  Receipt Date: 20090223
  Transmission Date: 20091009
  Serious: Yes (Other)
  Sender: FDA-Public Use
  Company Number: 000444

PATIENT
  Age: 45 Year
  Sex: Male

DRUGS (6)
  1. VIMPAT [Suspect]
     Indication: EPILEPSY
     Dosage: (LESS THAN 400 MG DAILY - WAS STARTED AT 50 M ORAL) ; (200 MG BID ORAL)
     Route: 048
     Dates: start: 20080915
  2. PHENYTOIN [Suspect]
     Indication: EPILEPSY
     Dosage: (300 MG QD ORAL) ; (350 MG QD ORAL) ; (300 MG QD ORAL) ; (275 MG QD ORAL)
     Route: 048
     Dates: start: 20090201, end: 20090201
  3. PHENYTOIN [Suspect]
     Indication: EPILEPSY
     Dosage: (300 MG QD ORAL) ; (350 MG QD ORAL) ; (300 MG QD ORAL) ; (275 MG QD ORAL)
     Route: 048
     Dates: end: 20090201
  4. PHENYTOIN [Suspect]
     Indication: EPILEPSY
     Dosage: (300 MG QD ORAL) ; (350 MG QD ORAL) ; (300 MG QD ORAL) ; (275 MG QD ORAL)
     Route: 048
     Dates: start: 20060404
  5. PHENYTOIN [Suspect]
     Indication: EPILEPSY
     Dosage: (300 MG QD ORAL) ; (350 MG QD ORAL) ; (300 MG QD ORAL) ; (275 MG QD ORAL)
     Route: 048
     Dates: start: 20090201
  6. VALPROIC ACID [Suspect]
     Dosage: (1000 MG)

REACTIONS (3)
  - DIPLOPIA [None]
  - DRUG LEVEL FLUCTUATING [None]
  - VISION BLURRED [None]
